FAERS Safety Report 7791410-3 (Version None)
Quarter: 2011Q4

REPORT INFORMATION
  Report Type: 
  Country: None (occurrence: None)
  Receive Date: 20111003
  Receipt Date: 20110920
  Transmission Date: 20120403
  Serious: Yes (Hospitalization)
  Sender: FDA-Public Use
  Company Number: DK-JNJFOC-20110909697

PATIENT
  Sex: Female

DRUGS (4)
  1. REMICADE [Suspect]
     Indication: SERONEGATIVE ARTHRITIS
     Dosage: 200 MG WEEKS 0, 2, 6,AND 8
     Route: 042
     Dates: start: 20110405
  2. REMICADE [Suspect]
     Route: 042
     Dates: end: 20110711
  3. PREDNISOLONE [Concomitant]
     Indication: SERONEGATIVE ARTHRITIS
     Route: 065
     Dates: start: 20110813
  4. METHOTREXATE [Concomitant]
     Route: 048
     Dates: start: 20100820

REACTIONS (1)
  - PNEUMONIA LEGIONELLA [None]
